FAERS Safety Report 6398011-2 (Version None)
Quarter: 2009Q4

REPORT INFORMATION
  Report Type: 
  Country: None (occurrence: None)
  Receive Date: 20091013
  Receipt Date: 20090928
  Transmission Date: 20100525
  Serious: Yes (Other)
  Sender: FDA-Public Use
  Company Number: IE-ROCHE-657291

PATIENT
  Sex: Female

DRUGS (4)
  1. RIVOTRIL [Suspect]
     Indication: ANXIETY
     Route: 048
     Dates: start: 20080315, end: 20090917
  2. DEPIXOL [Suspect]
     Dosage: DRUG NAME REPORTED AS DOPIXOL.
     Route: 030
  3. QUETIAPINE [Suspect]
     Indication: SCHIZOPHRENIA
     Route: 048
  4. MIRTAZAPINE [Suspect]
     Indication: DEPRESSIVE SYMPTOM
     Route: 048

REACTIONS (3)
  - DEPRESSION [None]
  - HYPOAESTHESIA [None]
  - SOMATIC HALLUCINATION [None]
